FAERS Safety Report 9700226 (Version 1)
Quarter: 2013Q4

REPORT INFORMATION
  Report Type: Spontaneous
  Country: US (occurrence: US)
  Receive Date: 20131121
  Receipt Date: 20131121
  Transmission Date: 20140711
  Serious: Yes (Other)
  Sender: FDA-Public Use
  Company Number: US-JNJFOC-20131107839

PATIENT
  Age: 86 Year
  Sex: Male

DRUGS (4)
  1. XARELTO [Suspect]
     Indication: CEREBROVASCULAR ACCIDENT PROPHYLAXIS
     Route: 048
     Dates: start: 2013, end: 201311
  2. XARELTO [Suspect]
     Indication: CEREBROVASCULAR ACCIDENT PROPHYLAXIS
     Dosage: CUT 20MG TABLETS IN HALF
     Route: 048
     Dates: start: 201311
  3. XARELTO [Suspect]
     Indication: ATRIAL FIBRILLATION
     Route: 048
     Dates: start: 2013, end: 201311
  4. XARELTO [Suspect]
     Indication: ATRIAL FIBRILLATION
     Dosage: CUT 20MG TABLETS IN HALF
     Route: 048
     Dates: start: 201311

REACTIONS (4)
  - Haematemesis [Recovered/Resolved]
  - Sputum discoloured [Not Recovered/Not Resolved]
  - Wrong technique in drug usage process [Unknown]
  - Incorrect dose administered [Unknown]
